FAERS Safety Report 4718052-8 (Version None)
Quarter: 2005Q3

REPORT INFORMATION
  Report Type: 
  Country: None (occurrence: None)
  Receive Date: 20050718
  Receipt Date: 20050328
  Transmission Date: 20060218
  Serious: No
  Sender: FDA-Public Use
  Company Number: 2005000687

PATIENT
  Age: 74 Year
  Sex: Male

DRUGS (3)
  1. TARCEVA [Suspect]
     Indication: NON-SMALL CELL LUNG CANCER
     Dosage: 150MG (QD), ORAL
     Route: 048
     Dates: start: 20050210
  2. COUMADIN [Concomitant]
  3. MILK OF MAGNESIA TAB [Concomitant]

REACTIONS (5)
  - NAIL DISCOLOURATION [None]
  - ONYCHORRHEXIS [None]
  - PROSTATITIS [None]
  - RASH [None]
  - SKIN FISSURES [None]
